FAERS Safety Report 6274029-5 (Version None)
Quarter: 2009Q3

REPORT INFORMATION
  Report Type: 
  Country: None (occurrence: None)
  Receive Date: 20090720
  Receipt Date: 20090708
  Transmission Date: 20100115
  Serious: Yes (Other)
  Sender: FDA-Public Use
  Company Number: US-ELI_LILLY_AND_COMPANY-US200905006067

PATIENT
  Sex: Male

DRUGS (3)
  1. CYMBALTA [Suspect]
     Dosage: 60 MG, UNK
     Route: 048
  2. LYRICA [Concomitant]
  3. FLEXERIL [Concomitant]

REACTIONS (3)
  - HYPOTENSION [None]
  - RENAL FAILURE [None]
  - SPINAL FUSION SURGERY [None]
